FAERS Safety Report 5871613-5 (Version None)
Quarter: 2008Q3

REPORT INFORMATION
  Report Type: 
  Country: None (occurrence: None)
  Receive Date: 20080905
  Receipt Date: 20080708
  Transmission Date: 20090109
  Serious: No
  Sender: FDA-Public Use
  Company Number: A0736480A

PATIENT
  Age: 53 Year
  Sex: Male

DRUGS (3)
  1. REQUIP [Suspect]
     Indication: RESTLESS LEGS SYNDROME
     Dosage: 4MG PER DAY
     Route: 048
     Dates: start: 20060101
  2. ADDERALL 10 [Concomitant]
  3. M.V.I. [Concomitant]

REACTIONS (1)
  - ABNORMAL DREAMS [None]
